FAERS Safety Report 24675526 (Version 1)
Quarter: 2024Q4

REPORT INFORMATION
  Report Type: Spontaneous
  Country: US (occurrence: US)
  Receive Date: 20241128
  Receipt Date: 20241128
  Transmission Date: 20250115
  Serious: No
  Sender: LABORATOIRES SERB
  Company Number: US-SERB S.A.S.-2166149

PATIENT
  Age: 9 Year
  Sex: Female

DRUGS (6)
  1. CROFAB [Suspect]
     Active Substance: AGKISTRODON PISCIVORUS IMMUNE FAB ANTIVENIN (OVINE)\CROTALUS ADAMANTEUS IMMUNE FAB ANTIVENIN (OVINE)
     Indication: Snake bite
  2. CROFAB [Suspect]
     Active Substance: AGKISTRODON PISCIVORUS IMMUNE FAB ANTIVENIN (OVINE)\CROTALUS ADAMANTEUS IMMUNE FAB ANTIVENIN (OVINE)
  3. ONDANSETRON [Concomitant]
     Active Substance: ONDANSETRON
  4. FENTANYL [Concomitant]
     Active Substance: FENTANYL
  5. SALINE [Concomitant]
     Active Substance: SODIUM CHLORIDE
  6. CROFAB [Suspect]
     Active Substance: AGKISTRODON PISCIVORUS IMMUNE FAB ANTIVENIN (OVINE)\CROTALUS ADAMANTEUS IMMUNE FAB ANTIVENIN (OVINE)

REACTIONS (2)
  - Coagulopathy [Unknown]
  - Off label use [Unknown]
